FAERS Safety Report 7680403-2 (Version None)
Quarter: 2011Q3

REPORT INFORMATION
  Report Type: 
  Country: None (occurrence: None)
  Receive Date: 20110812
  Receipt Date: 20110805
  Transmission Date: 20111222
  Serious: Yes (Other)
  Sender: FDA-Public Use
  Company Number: US-BRACCO-006286

PATIENT
  Age: 43 Year
  Sex: Female

DRUGS (18)
  1. PROHANCE [Suspect]
     Dates: start: 20090420, end: 20090420
  2. MAGNEVIST [Suspect]
     Dosage: 7 ML (3T)
     Dates: start: 20060410, end: 20060410
  3. PROHANCE [Suspect]
     Dates: start: 20081020, end: 20081020
  4. MAGNEVIST [Suspect]
     Dates: start: 20070614, end: 20070614
  5. MAGNEVIST [Suspect]
     Dates: start: 20061214, end: 20061214
  6. PROHANCE [Suspect]
     Dates: start: 20100329, end: 20100329
  7. PROHANCE [Suspect]
     Dates: start: 20091001, end: 20091001
  8. PROHANCE [Suspect]
     Dates: start: 20080626, end: 20080626
  9. PROHANCE [Suspect]
     Dates: start: 20090917, end: 20090917
  10. OMNISCAN [Suspect]
     Indication: NUCLEAR MAGNETIC RESONANCE IMAGING
     Dates: start: 20060220, end: 20060220
  11. PROHANCE [Suspect]
     Indication: NUCLEAR MAGNETIC RESONANCE IMAGING
     Dates: start: 20091228, end: 20091228
  12. MAGNEVIST [Suspect]
     Indication: NUCLEAR MAGNETIC RESONANCE IMAGING
     Dates: start: 20060105, end: 20060105
  13. MAGNEVIST [Suspect]
     Dates: start: 20070315, end: 20070315
  14. MAGNEVIST [Suspect]
     Dates: start: 20051005, end: 20051005
  15. MAGNEVIST [Suspect]
     Dates: start: 20060608, end: 20060608
  16. PROHANCE [Suspect]
     Dates: start: 20070913, end: 20070913
  17. MAGNEVIST [Suspect]
     Dates: start: 20060831, end: 20060831
  18. TEMODAR [Concomitant]

REACTIONS (1)
  - NEPHROGENIC SYSTEMIC FIBROSIS [None]
